FAERS Safety Report 16639716 (Version 1)
Quarter: 2019Q3

REPORT INFORMATION
  Report Type: Spontaneous
  Country: BR (occurrence: BR)
  Receive Date: 20190727
  Receipt Date: 20190727
  Transmission Date: 20191004
  Serious: Yes (Other)
  Sender: FDA-Public Use
  Company Number: BR-BRISTOL-MYERS SQUIBB COMPANY-BMS-2019-073014

PATIENT
  Age: 90 Year
  Sex: Female

DRUGS (1)
  1. GLIFAGE XR [Suspect]
     Active Substance: METFORMIN HYDROCHLORIDE
     Indication: TYPE 2 DIABETES MELLITUS
     Dosage: 500 MILLIGRAM, QD
     Route: 048

REACTIONS (3)
  - Wrong technique in product usage process [Unknown]
  - Dementia [Unknown]
  - Product use complaint [Unknown]

NARRATIVE: CASE EVENT DATE: 20190713
